FAERS Safety Report 9963000 (Version 1)
Quarter: 2014Q1

REPORT INFORMATION
  Report Type: Spontaneous
  Country: US (occurrence: US)
  Receive Date: 20140305
  Receipt Date: 20140305
  Transmission Date: 20141002
  Serious: No
  Sender: FDA-Public Use
  Company Number: US-TARO-2013P1001629

PATIENT
  Age: 56 Year
  Sex: Female
  Weight: 131.54 kg

DRUGS (4)
  1. NYSTATIN CREAM USP 100,000 UNITS/G [Suspect]
     Indication: FUNGAL INFECTION
     Route: 061
     Dates: start: 20130124, end: 20130127
  2. BENICAR HCT [Concomitant]
  3. ACIPHEX [Concomitant]
  4. MOBIC [Concomitant]

REACTIONS (4)
  - Condition aggravated [Not Recovered/Not Resolved]
  - Hypersensitivity [Not Recovered/Not Resolved]
  - Irritability [Not Recovered/Not Resolved]
  - Drug ineffective [Not Recovered/Not Resolved]
